FAERS Safety Report 8826813 (Version 1)
Quarter: 2012Q4

REPORT INFORMATION
  Report Type: Report from Study
  Country: GB (occurrence: CA)
  Receive Date: 20121005
  Receipt Date: 20121005
  Transmission Date: 20130627
  Serious: Yes (Death, Hospitalization, Other)
  Sender: FDA-Public Use
  Company Number: GB-PFIZER INC-2012240994

PATIENT
  Age: 51 Year
  Sex: Male

DRUGS (25)
  1. IRINOTECAN HCL [Suspect]
     Indication: GASTRIC CANCER
     Dosage: 234 mg, every 3 weeks
     Route: 042
     Dates: start: 20120321, end: 20120627
  2. OXALIPLATIN [Suspect]
     Indication: GASTRIC CANCER
     Dosage: 166 mg, every 3 weeks
     Route: 042
     Dates: start: 20120321, end: 20120627
  3. CAPECITABINE [Suspect]
     Indication: GASTRIC CANCER
     Dosage: 1450 mg, 1x/day
     Route: 048
     Dates: start: 20120322, end: 20120627
  4. TYLENOL [Concomitant]
     Indication: PAIN
     Dosage: UNK DF, UNK
     Route: 048
     Dates: start: 20120316
  5. ADVIL [Concomitant]
     Indication: PAIN
     Dosage: 200 mg, 2x/day
     Route: 048
     Dates: start: 20120320
  6. PANTOPRAZOLE SODIUM [Concomitant]
     Indication: GASTROOESOPHAGEAL REFLUX DISEASE
     Dosage: 40 mg, 2x/day
     Route: 048
     Dates: start: 20120102
  7. ENSURE [Concomitant]
     Indication: MEDICAL DIET
     Dosage: 1 DF, UNK 1 can
     Route: 048
     Dates: start: 20120301
  8. VITAMIN B12 [Concomitant]
     Dosage: 1 DF, monthly
     Route: 030
     Dates: start: 19980101
  9. IMMUNE SERUM GLOBULIN [Concomitant]
     Dosage: 45 g, monthly once per month
     Route: 042
     Dates: start: 20060101
  10. COLACE [Concomitant]
     Dosage: 20 mg, as needed
     Route: 048
     Dates: start: 20120323
  11. MAXERAN [Concomitant]
     Indication: NAUSEA
     Dosage: 10 mg, UNK
     Route: 048
     Dates: start: 20120321
  12. MAXERAN [Concomitant]
     Dosage: 10 mg, UNK
     Route: 048
     Dates: start: 20120326
  13. ZOFRAN [Concomitant]
     Indication: NAUSEA
     Dosage: 8 mg, UNK
     Route: 048
     Dates: start: 20120321
  14. DECADRON [Concomitant]
     Indication: NAUSEA
     Dosage: 10 mg, UNK
     Route: 048
     Dates: start: 20120321
  15. ATROPINE [Concomitant]
     Dosage: 0.6 mg, UNK
     Route: 058
  16. NORMAL SALINE [Concomitant]
     Indication: DEHYDRATION
     Dosage: 2 l, UNK
     Route: 042
     Dates: start: 20120522, end: 20120525
  17. NORMAL SALINE [Concomitant]
     Dosage: 1 l, UNK
     Route: 042
     Dates: start: 20120529, end: 20120529
  18. NORMAL SALINE [Concomitant]
     Dosage: 100 ml,per hour
     Route: 042
     Dates: start: 20120627
  19. NORMAL SALINE [Concomitant]
     Dosage: 100 ml, 3x/day
     Route: 040
     Dates: start: 20120705, end: 20120705
  20. POLYETHYLENE GLYCOL [Concomitant]
     Indication: CONSTIPATION
     Dosage: 17 g, UNK
     Route: 048
     Dates: start: 20120528
  21. DOMPERIDONE MALEATE [Concomitant]
     Dosage: 10 mg, UNK
     Route: 048
     Dates: start: 20120527
  22. TUMS [Concomitant]
     Route: 048
  23. SODIUM CHLORIDE [Concomitant]
     Indication: DEHYDRATION
     Dosage: 1 l, UNK
     Route: 042
     Dates: start: 20120531, end: 20120531
  24. SODIUM CHLORIDE [Concomitant]
     Dosage: 1 l, UNK
     Route: 042
     Dates: start: 20120601, end: 20120601
  25. POTASSIUM CHLORIDE [Concomitant]

REACTIONS (3)
  - Asthenia [Fatal]
  - Supraventricular tachycardia [Recovered/Resolved]
  - Hypokalaemia [Recovered/Resolved]
